FAERS Safety Report 18114417 (Version 1)
Quarter: 2020Q3

REPORT INFORMATION
  Report Type: Spontaneous
  Country: RO (occurrence: RO)
  Receive Date: 20200805
  Receipt Date: 20200805
  Transmission Date: 20201103
  Serious: Yes (Death, Other)
  Sender: FDA-Public Use
  Company Number: RO-TEVA-2020-RO-1810566

PATIENT
  Age: 70 Year
  Sex: Male

DRUGS (4)
  1. CISPLATIN. [Suspect]
     Active Substance: CISPLATIN
     Dosage: SALVAGE R?DHAP REGIMEN
     Route: 065
  2. DEXAMETHASONE. [Suspect]
     Active Substance: DEXAMETHASONE
     Dosage: SALVAGE R?DHAP REGIMEN
     Route: 065
  3. CYTARABINE. [Suspect]
     Active Substance: CYTARABINE
     Dosage: SALVAGE R?DHAP REGIMEN; HIGH DOSE
     Route: 065
  4. RITUXIMAB. [Suspect]
     Active Substance: RITUXIMAB
     Dosage: SALVAGE R?DHAP REGIMEN
     Route: 065

REACTIONS (4)
  - Acute kidney injury [Unknown]
  - Toxicity to various agents [Fatal]
  - Acute myocardial infarction [Fatal]
  - Cardiac failure [Fatal]
